FAERS Safety Report 5304427-5 (Version None)
Quarter: 2007Q2

REPORT INFORMATION
  Report Type: 
  Country: None (occurrence: None)
  Receive Date: 20070423
  Receipt Date: 20070409
  Transmission Date: 20071010
  Serious: Yes (Hospitalization)
  Sender: FDA-Public Use
  Company Number: TW-PFIZER INC-2007028463

PATIENT
  Age: 23 Year
  Sex: Male

DRUGS (6)
  1. METRONIDAZOLE TABLET [Suspect]
     Indication: GASTROOESOPHAGEAL REFLUX DISEASE
  2. METRONIDAZOLE TABLET [Suspect]
     Indication: DUODENAL ULCER
  3. CLARITHROMYCIN [Suspect]
     Indication: GASTROOESOPHAGEAL REFLUX DISEASE
  4. CLARITHROMYCIN [Suspect]
     Indication: DUODENAL ULCER
  5. OMEPRAZOLE [Suspect]
     Indication: GASTROOESOPHAGEAL REFLUX DISEASE
  6. OMEPRAZOLE [Suspect]
     Indication: DUODENAL ULCER

REACTIONS (4)
  - DYSPEPSIA [None]
  - HICCUPS [None]
  - NAUSEA [None]
  - PNEUMOMEDIASTINUM [None]
